FAERS Safety Report 7039687-6 (Version None)
Quarter: 2010Q4

REPORT INFORMATION
  Report Type: 
  Country: None (occurrence: None)
  Receive Date: 20101012
  Receipt Date: 20101008
  Transmission Date: 20110411
  Serious: Yes (Other)
  Sender: FDA-Public Use
  Company Number: CH-WYE-G06790010

PATIENT
  Age: 50 Year
  Sex: Female

DRUGS (2)
  1. VENLAFAXINE HYDROCHLORIDE [Suspect]
     Dosage: DOSE AND FREQUENCY UNKNOWN
  2. LYRICA [Suspect]
     Dosage: UNKNOWN DOSE INCREASED TO 150 TWICE DAILY

REACTIONS (3)
  - DRUG WITHDRAWAL SYNDROME [None]
  - SUICIDAL IDEATION [None]
  - THINKING ABNORMAL [None]
